FAERS Safety Report 11345401 (Version 1)
Quarter: 2015Q3

REPORT INFORMATION
  Report Type: Spontaneous
  Country: US (occurrence: None)
  Receive Date: 20150805
  Receipt Date: 20150805
  Transmission Date: 20151125
  Serious: No
  Sender: FDA-Public Use
  Company Number: None

PATIENT
  Age: 61 Year
  Sex: Male

DRUGS (1)
  1. HARVONI [Suspect]
     Active Substance: LEDIPASVIR\SOFOSBUVIR
     Indication: HEPATITIS C
     Dosage: ONE TAB
     Route: 048
     Dates: start: 20150701

REACTIONS (2)
  - Feeling hot [None]
  - Haematemesis [None]

NARRATIVE: CASE EVENT DATE: 20150804
